FAERS Safety Report 12243191 (Version 1)
Quarter: 2016Q2

REPORT INFORMATION
  Report Type: Spontaneous
  Country: US (occurrence: US)
  Receive Date: 20160406
  Receipt Date: 20160406
  Transmission Date: 20160815
  Serious: No
  Sender: FDA-Public Use
  Company Number: US-SA-2015SA046016

PATIENT
  Age: 60 Year
  Sex: Male

DRUGS (2)
  1. ALLEGRA-D [Suspect]
     Active Substance: FEXOFENADINE\PSEUDOEPHEDRINE
     Dosage: TAKEN FROM: 1.5 DAYS?END DATE: TODAY
     Route: 048
     Dates: end: 20150408
  2. ALPRAZOLAM. [Concomitant]
     Active Substance: ALPRAZOLAM
     Indication: SLEEP DISORDER
     Dosage: DOSE: 0.05
     Route: 065

REACTIONS (3)
  - Dry mouth [Unknown]
  - Dehydration [Unknown]
  - Mouth swelling [Unknown]
